FAERS Safety Report 12379439 (Version 1)
Quarter: 2016Q2

REPORT INFORMATION
  Report Type: Spontaneous
  Country: US (occurrence: US)
  Receive Date: 20160517
  Receipt Date: 20160517
  Transmission Date: 20160815
  Serious: No
  Sender: FDA-Public Use
  Company Number: US-TEIKOKU PHARMA USA-TPU2015-00329

PATIENT
  Age: 82 Year
  Sex: Female
  Weight: 56.3 kg

DRUGS (2)
  1. TYLENOL [Concomitant]
     Active Substance: ACETAMINOPHEN
     Indication: NERVE INJURY
     Dates: start: 2012
  2. LIDODERM [Suspect]
     Active Substance: LIDOCAINE
     Indication: BACK PAIN
     Route: 061
     Dates: start: 20150708, end: 20150709

REACTIONS (6)
  - Cough [Not Recovered/Not Resolved]
  - Hypoaesthesia [Recovered/Resolved]
  - Dyspnoea [Not Recovered/Not Resolved]
  - Dysarthria [Recovered/Resolved]
  - Blindness [Recovered/Resolved]
  - Pain [Not Recovered/Not Resolved]

NARRATIVE: CASE EVENT DATE: 20150708
